FAERS Safety Report 7482982-7 (Version None)
Quarter: 2011Q2

REPORT INFORMATION
  Report Type: 
  Country: None (occurrence: None)
  Receive Date: 20110516
  Receipt Date: 20110509
  Transmission Date: 20111010
  Serious: Yes (Other)
  Sender: FDA-Public Use
  Company Number: US-ABBOTT-11P-163-0724710-00

PATIENT
  Sex: Female
  Weight: 59.02 kg

DRUGS (4)
  1. NIASPAN [Suspect]
     Indication: LOW DENSITY LIPOPROTEIN INCREASED
     Route: 048
     Dates: start: 20110401
  2. VITAMIN D [Concomitant]
     Indication: VITAMIN SUPPLEMENTATION
     Route: 048
  3. UNKNOWN BIRTH CONTROL [Concomitant]
     Indication: PROPHYLAXIS
  4. GARLIC [Concomitant]
     Indication: PHYTOTHERAPY
     Route: 048

REACTIONS (5)
  - ERYTHEMA [None]
  - DEAFNESS UNILATERAL [None]
  - SKIN WARM [None]
  - HYPERTENSION [None]
  - FLUSHING [None]
